FAERS Safety Report 9135074 (Version 1)
Quarter: 2013Q1

REPORT INFORMATION
  Report Type: Spontaneous
  Country: CH (occurrence: CH)
  Receive Date: 20130304
  Receipt Date: 20130304
  Transmission Date: 20140127
  Serious: Yes (Hospitalization)
  Sender: FDA-Public Use
  Company Number: CH-BAYER-2013-025265

PATIENT
  Age: 80 Year
  Sex: Male
  Weight: 75 kg

DRUGS (6)
  1. XARELTO [Suspect]
     Indication: PULMONARY EMBOLISM
     Dosage: 20 MG, QD
     Dates: start: 201207, end: 20130217
  2. XARELTO [Interacting]
     Indication: EMBOLISM VENOUS
  3. ASPIRIN CARDIO [Interacting]
     Indication: METABOLIC DISORDER
     Dosage: 100 MG, QD
     Dates: end: 20130217
  4. CALCIMAGON [Concomitant]
  5. MEPHANOL [Concomitant]
  6. SIMVASTATIN [Concomitant]

REACTIONS (4)
  - Cerebral haemorrhage [Not Recovered/Not Resolved]
  - Aphasia [Not Recovered/Not Resolved]
  - Hemiplegia [Not Recovered/Not Resolved]
  - Hypertension [Not Recovered/Not Resolved]
